FAERS Safety Report 9697003 (Version 3)
Quarter: 2014Q1

REPORT INFORMATION
  Report Type: Spontaneous
  Country: US (occurrence: US)
  Receive Date: 20131119
  Receipt Date: 20140114
  Transmission Date: 20141002
  Serious: Yes (Other)
  Sender: FDA-Public Use
  Company Number: US-JNJFOC-20131110025

PATIENT
  Age: 53 Year
  Sex: Male
  Weight: 102 kg

DRUGS (5)
  1. IBUPROFEN [Suspect]
     Indication: ARTHRALGIA
     Route: 065
     Dates: start: 2013
  2. LIPITOR [Suspect]
     Indication: STENT PLACEMENT
     Route: 048
     Dates: start: 201309, end: 201310
  3. LIPITOR [Suspect]
     Indication: STENT PLACEMENT
     Route: 048
     Dates: start: 20130708, end: 201309
  4. LIPITOR [Suspect]
     Indication: LOW DENSITY LIPOPROTEIN DECREASED
     Route: 048
     Dates: start: 201309, end: 201310
  5. LIPITOR [Suspect]
     Indication: LOW DENSITY LIPOPROTEIN DECREASED
     Route: 048
     Dates: start: 20130708, end: 201309

REACTIONS (11)
  - Myalgia [Recovering/Resolving]
  - Musculoskeletal discomfort [Recovering/Resolving]
  - Pain in extremity [Recovering/Resolving]
  - Blood cholesterol increased [Recovering/Resolving]
  - Blood creatine phosphokinase increased [Recovering/Resolving]
  - Fatigue [Recovering/Resolving]
  - Pollakiuria [Recovering/Resolving]
  - Arthralgia [Recovering/Resolving]
  - Muscular weakness [Recovering/Resolving]
  - Visual impairment [Recovering/Resolving]
  - Drug ineffective [Unknown]
